FAERS Safety Report 11370805 (Version 2)
Quarter: 2015Q3

REPORT INFORMATION
  Report Type: Spontaneous
  Country: BR (occurrence: BR)
  Receive Date: 20150812
  Receipt Date: 20150828
  Transmission Date: 20151125
  Serious: Yes (Other)
  Sender: FDA-Public Use
  Company Number: BR-GLAXOSMITHKLINE-BR2015GSK114081

PATIENT
  Age: 3 Month
  Sex: Male
  Weight: 16 kg

DRUGS (5)
  1. AVAMYS [Suspect]
     Active Substance: FLUTICASONE FUROATE
     Indication: BRONCHITIS
     Dosage: 1 PUFF(S), QD
     Route: 045
     Dates: start: 20130408
  2. AEROLIN [Suspect]
     Active Substance: ALBUTEROL
     Indication: ASTHMA
     Dosage: UNK
     Route: 055
     Dates: start: 20120708
  3. CLENIL [Concomitant]
     Active Substance: BECLOMETHASONE DIPROPIONATE
     Indication: ASTHMATIC CRISIS
     Dosage: UNK
  4. PIEMONTE [Concomitant]
     Active Substance: MONTELUKAST SODIUM
     Indication: VASCULAR RESISTANCE PULMONARY DECREASED
     Dosage: 4 MG, QD
     Route: 048
     Dates: start: 20120708
  5. FLIXOTIDE [Suspect]
     Active Substance: FLUTICASONE PROPIONATE
     Indication: BRONCHITIS
     Dosage: 1 PUFF(S), BID
     Route: 055
     Dates: start: 20150708

REACTIONS (5)
  - Epistaxis [Recovered/Resolved]
  - Drug administration error [Recovered/Resolved]
  - Asthmatic crisis [Not Recovered/Not Resolved]
  - Off label use [Unknown]
  - Product quality issue [Unknown]

NARRATIVE: CASE EVENT DATE: 20120708
